FAERS Safety Report 5179270-0 (Version None)
Quarter: 2006Q4

REPORT INFORMATION
  Report Type: 
  Country: None (occurrence: None)
  Receive Date: 20061219
  Receipt Date: 20061212
  Transmission Date: 20070319
  Serious: Yes (Other)
  Sender: FDA-Public Use
  Company Number: BR-JNJFOC-20061204735

PATIENT
  Age: 85 Year
  Sex: Female
  Weight: 72 kg

DRUGS (6)
  1. REMINYL ER [Suspect]
  2. REMINYL ER [Suspect]
  3. REMINYL ER [Suspect]
     Indication: DEMENTIA ALZHEIMER'S TYPE
  4. EBIX [Concomitant]
     Indication: DEMENTIA ALZHEIMER'S TYPE
     Route: 048
  5. RETEMIC [Concomitant]
     Indication: URINARY INCONTINENCE
  6. NEXIUM [Concomitant]
     Indication: GASTRIC DISORDER
     Route: 048

REACTIONS (2)
  - GENERALISED ERYTHEMA [None]
  - PRURITUS [None]
